FAERS Safety Report 4986742-8 (Version None)
Quarter: 2006Q2

REPORT INFORMATION
  Report Type: 
  Country: None (occurrence: None)
  Receive Date: 20060428
  Receipt Date: 20050516
  Transmission Date: 20061013
  Serious: Yes (Other)
  Sender: FDA-Public Use
  Company Number: US-MERCK-0505USA01948M

PATIENT
  Age: 32 Year
  Sex: Female

DRUGS (11)
  1. SINGULAIR [Suspect]
     Indication: ASTHMA
     Route: 048
     Dates: start: 20000101, end: 20050601
  2. SINGULAIR [Suspect]
     Indication: HYPERSENSITIVITY
     Route: 048
     Dates: start: 20000101, end: 20050601
  3. PREDNISONE [Concomitant]
     Route: 065
     Dates: start: 20020101
  4. ENBREL [Concomitant]
     Route: 065
     Dates: start: 20020201
  5. PULMICORT [Concomitant]
     Route: 055
  6. ALBUTEROL [Concomitant]
     Route: 055
  7. DARVOCET [Concomitant]
     Route: 065
  8. ACIPHEX [Concomitant]
     Route: 065
  9. NATAFORT PRENATAL VITAMIN [Concomitant]
     Route: 065
  10. ARAVA [Concomitant]
     Route: 065
  11. [THERAPY UNSPECIFIED] [Concomitant]
     Route: 065

REACTIONS (8)
  - BRONCHITIS [None]
  - CAESAREAN SECTION [None]
  - DRUG EXPOSURE DURING PREGNANCY [None]
  - OXYGEN CONSUMPTION DECREASED [None]
  - PREGNANCY [None]
  - PROLONGED LABOUR [None]
  - RHEUMATOID ARTHRITIS [None]
  - SINUSITIS [None]
